FAERS Safety Report 6589077-5 (Version None)
Quarter: 2010Q1

REPORT INFORMATION
  Report Type: 
  Country: None (occurrence: None)
  Receive Date: 20100218
  Receipt Date: 20100208
  Transmission Date: 20100710
  Serious: Yes (Hospitalization)
  Sender: FDA-Public Use
  Company Number: GXBR2010US00592

PATIENT
  Sex: Female

DRUGS (3)
  1. INFUVITE ADULT (NGX) [Suspect]
     Indication: MEDICAL DIET
     Dosage: 10 ML, QD
     Route: 042
     Dates: start: 20100204, end: 20100205
  2. INFUVITE PEDIATRIC (NGX) [Suspect]
     Dosage: UNK
  3. TPN [Suspect]
     Indication: MEDICAL DIET
     Dosage: UNK
     Route: 042
     Dates: start: 20100204, end: 20100205

REACTIONS (2)
  - DRUG ADMINISTRATION ERROR [None]
  - PYREXIA [None]
